FAERS Safety Report 5742926-2 (Version None)
Quarter: 2008Q2

REPORT INFORMATION
  Report Type: 
  Country: None (occurrence: None)
  Receive Date: 20080519
  Receipt Date: 20080513
  Transmission Date: 20081010
  Serious: Yes (Hospitalization)
  Sender: FDA-Public Use
  Company Number: FR-ASTRAZENECA-2008CG00704

PATIENT
  Age: 45 Year
  Sex: Female

DRUGS (1)
  1. ZOMIG [Suspect]
     Indication: MIGRAINE
     Dosage: 7.5 TO 10 MG DAILY
     Route: 048

REACTIONS (2)
  - INTENTIONAL DRUG MISUSE [None]
  - PAIN IN EXTREMITY [None]
